FAERS Safety Report 15414702 (Version 1)
Quarter: 2018Q3

REPORT INFORMATION
  Report Type: Report from Study
  Country: US (occurrence: US)
  Receive Date: 20180921
  Receipt Date: 20180921
  Transmission Date: 20181010
  Serious: Yes (Other)
  Sender: FDA-Public Use
  Company Number: US-SAKK-2018SA237555AA

PATIENT
  Age: 57 Year
  Sex: Female

DRUGS (1)
  1. INSULIN GLARGINE [Suspect]
     Active Substance: INSULIN GLARGINE
     Indication: TYPE 2 DIABETES MELLITUS
     Dosage: 34 U, QD (AT NIGHT)
     Route: 058
     Dates: start: 20120420

REACTIONS (6)
  - Blood glucose increased [Not Recovered/Not Resolved]
  - Impaired quality of life [Unknown]
  - Wrong device used [Unknown]
  - Small cell lung cancer [Not Recovered/Not Resolved]
  - Underdose [Unknown]
  - Anxiety [Not Recovered/Not Resolved]

NARRATIVE: CASE EVENT DATE: 201801
